FAERS Safety Report 4751816-3 (Version None)
Quarter: 2005Q3

REPORT INFORMATION
  Report Type: 
  Country: None (occurrence: None)
  Receive Date: 20050822
  Receipt Date: 20050714
  Transmission Date: 20060218
  Serious: No
  Sender: FDA-Public Use
  Company Number: PHEH2005US07849

PATIENT
  Age: 49 Year
  Sex: Female

DRUGS (9)
  1. ZELNORM [Suspect]
     Indication: CONSTIPATION
     Dosage: 6 MG, TID, ORAL
     Route: 048
     Dates: start: 20050708
  2. PRILOSEC [Suspect]
  3. SYNTHROID [Concomitant]
  4. PRAZOSIN GITS [Concomitant]
  5. TRENTAL [Concomitant]
  6. XANAX [Concomitant]
  7. IMDUR [Concomitant]
  8. ELAVIL [Concomitant]
  9. ZESTRIL [Concomitant]

REACTIONS (4)
  - ABDOMINAL PAIN UPPER [None]
  - BACK PAIN [None]
  - DECREASED APPETITE [None]
  - DYSGEUSIA [None]
